FAERS Safety Report 4459703-5 (Version None)
Quarter: 2004Q3

REPORT INFORMATION
  Report Type: 
  Country: None (occurrence: None)
  Receive Date: 20040928
  Receipt Date: 20040921
  Transmission Date: 20050211
  Serious: Yes (Other)
  Sender: FDA-Public Use
  Company Number: CA-JNJFOC-20040907989

PATIENT
  Age: 77 Year
  Sex: Female

DRUGS (1)
  1. REMICADE [Suspect]
     Indication: CROHN'S DISEASE
     Dosage: 18 TREATMENTS IN TOTAL.
     Route: 042
     Dates: start: 20020101, end: 20040101

REACTIONS (2)
  - HEPATIC NEOPLASM MALIGNANT [None]
  - THERAPEUTIC RESPONSE DECREASED [None]
